FAERS Safety Report 4570501-4 (Version None)
Quarter: 2005Q1

REPORT INFORMATION
  Report Type: 
  Country: None (occurrence: None)
  Receive Date: 20050203
  Receipt Date: 20050203
  Transmission Date: 20050727
  Serious: Yes (Other)
  Sender: FDA-Public Use
  Company Number: None

PATIENT
  Age: 47 Year
  Sex: Male
  Weight: 88.4514 kg

DRUGS (1)
  1. LIPITOR [Suspect]
     Indication: BLOOD CHOLESTEROL INCREASED
     Dosage: ONCE A DAY
     Dates: start: 20030101, end: 20050121

REACTIONS (4)
  - DRUG EXPOSURE DURING PREGNANCY [None]
  - MISCARRIAGE OF PARTNER [None]
  - SEMEN ABNORMAL [None]
  - SPERM ANALYSIS ABNORMAL [None]
